FAERS Safety Report 8188473-2 (Version None)
Quarter: 2012Q1

REPORT INFORMATION
  Report Type: 
  Country: None (occurrence: None)
  Receive Date: 20120306
  Receipt Date: 20120228
  Transmission Date: 20120608
  Serious: Yes (Hospitalization)
  Sender: FDA-Public Use
  Company Number: PHHY2012FR018518

PATIENT
  Age: 76 Year
  Sex: Female

DRUGS (3)
  1. FORADIL [Suspect]
     Dosage: UNK
     Dates: start: 20110902, end: 20111027
  2. ISOPTIN [Suspect]
     Dosage: UNK
     Dates: start: 20110902, end: 20111027
  3. ALLOPURINOL [Suspect]
     Dosage: UNK
     Dates: start: 20110906, end: 20111027

REACTIONS (7)
  - PYELONEPHRITIS ACUTE [None]
  - DRUG RASH WITH EOSINOPHILIA AND SYSTEMIC SYMPTOMS [None]
  - ERYTHEMA [None]
  - ANGIOEDEMA [None]
  - PERIORBITAL OEDEMA [None]
  - PRURITUS [None]
  - EOSINOPHIL COUNT INCREASED [None]
